FAERS Safety Report 8154017 (Version 6)
Quarter: 2012Q4

REPORT INFORMATION
  Report Type: Report from Study
  Country: CH (occurrence: CH)
  Receive Date: 20110923
  Receipt Date: 20121105
  Transmission Date: 20130627
  Serious: Yes (Hospitalization)
  Sender: FDA-Public Use
  Company Number: CH-ROCHE-803568

PATIENT
  Age: 49 Year
  Sex: Female
  Weight: 42 kg

DRUGS (1)
  1. VEMURAFENIB [Suspect]
     Indication: METASTATIC MALIGNANT MELANOMA
     Dosage: FREQUENCY: 2
     Route: 048
     Dates: start: 20110704, end: 20110919

REACTIONS (1)
  - Abdominal neoplasm [Recovered/Resolved with Sequelae]
